FAERS Safety Report 8935422 (Version 1)
Quarter: 2012Q4

REPORT INFORMATION
  Report Type: Spontaneous
  Country: US (occurrence: None)
  Receive Date: 20121128
  Receipt Date: 20121128
  Transmission Date: 20130627
  Serious: Yes (Hospitalization)
  Sender: FDA-Public Use
  Company Number: None

PATIENT
  Age: 78 Year
  Sex: Male

DRUGS (1)
  1. TARCEVA [Suspect]
     Indication: CANCER
     Route: 048
     Dates: start: 20120928, end: 20121105

REACTIONS (3)
  - Rash pruritic [None]
  - Rash generalised [None]
  - Thrombosis [None]
